FAERS Safety Report 4752235-6 (Version None)
Quarter: 2005Q3

REPORT INFORMATION
  Report Type: 
  Country: None (occurrence: None)
  Receive Date: 20050825
  Receipt Date: 20020227
  Transmission Date: 20060218
  Serious: No
  Sender: FDA-Public Use
  Company Number: US-GLAXOSMITHKLINE-A0362006A

PATIENT
  Age: 41 Year
  Sex: Female

DRUGS (8)
  1. LOTRONEX [Suspect]
     Indication: IRRITABLE BOWEL SYNDROME
     Route: 048
  2. ATENOLOL [Concomitant]
  3. PRILOSEC [Concomitant]
  4. FIORINAL [Concomitant]
  5. WELLBUTRIN [Concomitant]
  6. SINGULAIR [Concomitant]
  7. LEVBID [Concomitant]
  8. FIBER [Concomitant]

REACTIONS (3)
  - ABDOMINAL PAIN [None]
  - BACK PAIN [None]
  - CONSTIPATION [None]
